FAERS Safety Report 10171092 (Version 1)
Quarter: 2014Q2

REPORT INFORMATION
  Report Type: Spontaneous
  Country: GB (occurrence: GB)
  Receive Date: 20140514
  Receipt Date: 20140514
  Transmission Date: 20141212
  Serious: Yes (Hospitalization)
  Sender: FDA-Public Use
  Company Number: PHHY2014GB056614

PATIENT
  Age: 59 Year
  Sex: Male
  Weight: 76 kg

DRUGS (1)
  1. INDOMETHACIN [Suspect]
     Indication: GOUT
     Route: 048
     Dates: start: 20140211, end: 20140221

REACTIONS (1)
  - Pancreatitis [Recovering/Resolving]
